FAERS Safety Report 4575047-5 (Version None)
Quarter: 2005Q1

REPORT INFORMATION
  Report Type: 
  Country: None (occurrence: None)
  Receive Date: 20050208
  Receipt Date: 20020722
  Transmission Date: 20050727
  Serious: Yes (Other)
  Sender: FDA-Public Use
  Company Number: US-GLAXOSMITHKLINE-A0376088A

PATIENT
  Age: 50 Year
  Sex: Male

DRUGS (2)
  1. PAXIL [Suspect]
     Indication: DEPRESSION
     Dates: start: 19980101
  2. SSRI [Suspect]
     Indication: DEPRESSION
     Dates: start: 19981013

REACTIONS (25)
  - AGGRESSION [None]
  - AMNESIA [None]
  - ANOREXIA [None]
  - ANXIETY [None]
  - DEMENTIA [None]
  - DYSKINESIA [None]
  - HALLUCINATION [None]
  - HYPERHIDROSIS [None]
  - HYPERSENSITIVITY [None]
  - HYPERSOMNIA [None]
  - HYPERTENSION [None]
  - IRRITABILITY [None]
  - LETHARGY [None]
  - LOSS OF CONSCIOUSNESS [None]
  - MEMORY IMPAIRMENT [None]
  - MENTAL DISORDER [None]
  - NIGHTMARE [None]
  - PALPITATIONS [None]
  - PARANOIA [None]
  - PHYSICAL ASSAULT [None]
  - PSYCHOTIC DISORDER [None]
  - RESTLESS LEGS SYNDROME [None]
  - SEXUAL DYSFUNCTION [None]
  - SOCIAL AVOIDANT BEHAVIOUR [None]
  - VISUAL FIELD DEFECT [None]
